FAERS Safety Report 20707041 (Version 1)
Quarter: 2022Q2

REPORT INFORMATION
  Report Type: Spontaneous
  Country: US (occurrence: None)
  Receive Date: 20220413
  Receipt Date: 20220413
  Transmission Date: 20220720
  Serious: Yes (Hospitalization)
  Sender: FDA-Public Use
  Company Number: None

PATIENT
  Age: 61 Year
  Sex: Female

DRUGS (1)
  1. HUMIRA [Suspect]
     Active Substance: ADALIMUMAB
     Indication: Crohn^s disease
     Dosage: 40 MG/0.4ML?INJECT 1 PEN UNDER THE SKIN EVERY 14 (FOURTEEN) DAYS
     Route: 058
     Dates: start: 20200715

REACTIONS (1)
  - Obstruction [None]

NARRATIVE: CASE EVENT DATE: 20220331
